FAERS Safety Report 5339956-1 (Version None)
Quarter: 2007Q3

REPORT INFORMATION
  Report Type: 
  Country: None (occurrence: None)
  Receive Date: 20070529
  Receipt Date: 20070521
  Transmission Date: 20080115
  Serious: Yes (Other)
  Sender: FDA-Public Use
  Company Number: JPI-P-001364

PATIENT
  Age: 43 Year
  Sex: Female
  Weight: 79.3795 kg

DRUGS (13)
  1. XYREM [Suspect]
     Indication: CATAPLEXY
     Dosage: 7.5 GM (3.75 GM,2 IN 1 D),ORAL
     Route: 048
     Dates: start: 20070426
  2. LAMICTAL [Suspect]
     Indication: CONVULSION
     Dosage: SEE IMAGE
     Dates: end: 20070515
  3. LAMICTAL [Suspect]
     Indication: CONVULSION
     Dosage: SEE IMAGE
     Dates: start: 20070516
  4. TYSABRI [Concomitant]
  5. ABILIFY [Concomitant]
  6. CYMBALTA [Concomitant]
  7. PROVIGIL [Concomitant]
  8. TOPAMAX [Concomitant]
  9. DURAGESIC (FENTANYL) (POULTICE OR PATCH) [Concomitant]
  10. GABAPENTIN [Concomitant]
  11. ADDERALL XR (OBETROL /01345401/) [Concomitant]
  12. BACLOFEN [Concomitant]
  13. MS CONTIN [Concomitant]

REACTIONS (7)
  - BLOOD PRESSURE INCREASED [None]
  - CONDITION AGGRAVATED [None]
  - GRAND MAL CONVULSION [None]
  - HEART RATE INCREASED [None]
  - MEMORY IMPAIRMENT [None]
  - NASAL DISORDER [None]
  - PETIT MAL EPILEPSY [None]
